FAERS Safety Report 15641826 (Version 1)
Quarter: 2018Q4

REPORT INFORMATION
  Report Type: Report from Study
  Country: US (occurrence: US)
  Receive Date: 20181121
  Receipt Date: 20181121
  Transmission Date: 20190205
  Serious: Yes (Other)
  Sender: FDA-Public Use
  Company Number: US-ROCHE-1426778

PATIENT
  Sex: Male
  Weight: 22 kg

DRUGS (4)
  1. NUTROPIN AQ [Suspect]
     Active Substance: SOMATROPIN
     Indication: GROWTH HORMONE DEFICIENCY
     Route: 058
     Dates: start: 20120328
  2. NUTROPIN AQ [Suspect]
     Active Substance: SOMATROPIN
     Route: 058
  3. NUTROPIN AQ [Suspect]
     Active Substance: SOMATROPIN
     Indication: BODY HEIGHT BELOW NORMAL
     Route: 058
  4. NUTROPIN AQ [Suspect]
     Active Substance: SOMATROPIN
     Dosage: NUSPIN 10, 0.1 MG DOSING INCREMENTS, 7 INJECTIONS PER WEEK, DISPENSED 3 MONTH SUPPLY AND REFILLED TH
     Route: 058

REACTIONS (5)
  - Enuresis [Unknown]
  - Growth retardation [Unknown]
  - Decreased appetite [Unknown]
  - Failure to thrive [Unknown]
  - Eosinophilic oesophagitis [Unknown]
